FAERS Safety Report 4377989-2 (Version None)
Quarter: 2004Q2

REPORT INFORMATION
  Report Type: 
  Country: None (occurrence: None)
  Receive Date: 20040609
  Receipt Date: 20040527
  Transmission Date: 20050107
  Serious: Yes (Hospitalization, Other)
  Sender: FDA-Public Use
  Company Number: 061-0981-M0000206

PATIENT
  Age: 68 Year
  Sex: Male
  Weight: 72.5 kg

DRUGS (3)
  1. ATORVASTATIN             (ATORVASTATIN) [Suspect]
     Indication: HYPERLIPIDAEMIA
     Dosage: 10 MG (1 IN 1 D), ORAL
     Route: 048
     Dates: start: 19990818, end: 19991012
  2. ACETYLSALICYLIC ACID SRT [Concomitant]
  3. TRIMETHOPRIM [Concomitant]

REACTIONS (4)
  - ABDOMINAL DISTENSION [None]
  - BLADDER CANCER [None]
  - PROSTATITIS [None]
  - URINARY RETENTION [None]
